FAERS Safety Report 5041005-X (Version None)
Quarter: 2006Q3

REPORT INFORMATION
  Report Type: 
  Country: None (occurrence: None)
  Receive Date: 20060703
  Receipt Date: 20051031
  Transmission Date: 20061208
  Serious: No
  Sender: FDA-Public Use
  Company Number: US-GLAXOSMITHKLINE-A0580303A

PATIENT
  Age: 59 Year
  Sex: Female

DRUGS (5)
  1. PARNATE [Suspect]
     Indication: DEPRESSION
     Dosage: 40MG PER DAY
     Route: 048
     Dates: start: 20051011
  2. KLONOPIN [Concomitant]
  3. TRAZODONE HCL [Concomitant]
  4. VICODIN [Concomitant]
  5. SYNTHROID [Concomitant]

REACTIONS (2)
  - ASTHENIA [None]
  - DIZZINESS [None]
